FAERS Safety Report 13816030 (Version 1)
Quarter: 2017Q3

REPORT INFORMATION
  Report Type: Spontaneous
  Country: US (occurrence: US)
  Receive Date: 20170731
  Receipt Date: 20170731
  Transmission Date: 20171127
  Serious: Yes (Hospitalization)
  Sender: FDA-Public Use
  Company Number: US-SA-2017SA105226

PATIENT
  Age: 74 Year
  Sex: Female

DRUGS (14)
  1. AMBIEN [Suspect]
     Active Substance: ZOLPIDEM TARTRATE
     Route: 048
  2. PAXIL [Concomitant]
     Active Substance: PAROXETINE HYDROCHLORIDE
  3. METOPROLOL. [Concomitant]
     Active Substance: METOPROLOL
  4. OMEGA 3 [Concomitant]
     Active Substance: OMEGA-3 FATTY ACIDS
  5. ASPIRIN. [Concomitant]
     Active Substance: ASPIRIN
  6. MELATONIN [Concomitant]
     Active Substance: MELATONIN
  7. SENOKOT [Concomitant]
     Active Substance: SENNOSIDES
  8. ZETIA [Concomitant]
     Active Substance: EZETIMIBE
  9. VITAMIN D/CALCIUM [Concomitant]
  10. AMBIEN [Suspect]
     Active Substance: ZOLPIDEM TARTRATE
     Route: 048
  11. METFORMIN [Concomitant]
     Active Substance: METFORMIN HYDROCHLORIDE
  12. NORCO [Concomitant]
     Active Substance: ACETAMINOPHEN\HYDROCODONE BITARTRATE
  13. DOCOSAHEXANOIC ACID [Concomitant]
  14. LISINOPRIL. [Concomitant]
     Active Substance: LISINOPRIL

REACTIONS (3)
  - Accidental overdose [Unknown]
  - Sopor [Recovered/Resolved]
  - Unresponsive to stimuli [Recovered/Resolved]

NARRATIVE: CASE EVENT DATE: 20170302
